FAERS Safety Report 7587597-8 (Version None)
Quarter: 2011Q3

REPORT INFORMATION
  Report Type: 
  Country: None (occurrence: None)
  Receive Date: 20110704
  Receipt Date: 20110622
  Transmission Date: 20111222
  Serious: Yes (Death, Hospitalization)
  Sender: FDA-Public Use
  Company Number: PHHY2011MX40911

PATIENT
  Sex: Female

DRUGS (2)
  1. INSULIN [Concomitant]
  2. EXFORGE [Suspect]
     Indication: HYPERTENSION
     Dosage: 160 MG VALS AND 10 MG HCT, 2 DF DAILY
     Dates: start: 20110301

REACTIONS (5)
  - RENAL FAILURE [None]
  - OEDEMA PERIPHERAL [None]
  - CARDIAC ARREST [None]
  - DIABETES MELLITUS [None]
  - CARDIAC FAILURE [None]
